FAERS Safety Report 6920043-3 (Version None)
Quarter: 2010Q3

REPORT INFORMATION
  Report Type: 
  Country: None (occurrence: None)
  Receive Date: 20100730
  Receipt Date: 20090918
  Transmission Date: 20110219
  Serious: Yes (Other)
  Sender: FDA-Public Use
  Company Number: OMPQ-PR-0909S-0812

PATIENT
  Sex: Female

DRUGS (2)
  1. OMNIPAQUE 140 [Suspect]
     Indication: MUSCULOSKELETAL PAIN
     Dosage: 3 ML, SINGLE DOSE, INTRA-ARTICULAR
     Route: 014
     Dates: start: 20080101, end: 20080101
  2. OMNISCAN [Suspect]
     Indication: MUSCULOSKELETAL PAIN
     Dosage: 5-15 ML SOLUTION (1 ML OF OMNISCAN DILUTED IN 100 ML OF SALINE) , SINGLE DOSE, INTRA-ARTICULAR
     Route: 014
     Dates: start: 20080101, end: 20080101

REACTIONS (3)
  - ANAPHYLACTOID REACTION [None]
  - CHEST DISCOMFORT [None]
  - DYSPNOEA [None]
